FAERS Safety Report 8761211 (Version 1)
Quarter: 2012Q4

REPORT INFORMATION
  Report Type: Report from Study
  Country: US (occurrence: US)
  Receive Date: 20120830
  Receipt Date: 20120830
  Transmission Date: 20130627
  Serious: Yes (Life-Threatening, Hospitalization)
  Sender: FDA-Public Use
  Company Number: US-GLAXOSMITHKLINE-A0874116A

PATIENT
  Age: 51 Year
  Sex: Female
  Weight: 113.3 kg

DRUGS (4)
  1. PAZOPANIB [Suspect]
     Indication: BREAST CANCER
     Dosage: 800MG Per day
     Route: 048
     Dates: start: 20100623, end: 20100730
  2. DOXORUBICIN [Suspect]
     Indication: BREAST CANCER
     Dosage: 60MGM2 Cyclic
     Route: 042
     Dates: start: 20100331, end: 20100602
  3. CYCLOPHOSPHAMIDE [Suspect]
     Indication: BREAST CANCER
     Dosage: 600MGM2 Cyclic
     Route: 042
     Dates: start: 20100331, end: 20100602
  4. PACLITAXEL [Suspect]
     Indication: BREAST CANCER
     Dosage: 80MGM2 Cyclic
     Route: 042
     Dates: start: 20100623

REACTIONS (7)
  - Pulmonary embolism [Recovered/Resolved]
  - Asthenia [Unknown]
  - Fatigue [Unknown]
  - Dyspnoea [Unknown]
  - Blood pressure increased [Unknown]
  - Pain in extremity [Unknown]
  - Chest discomfort [Unknown]
